FAERS Safety Report 9874623 (Version 3)
Quarter: 2014Q1

REPORT INFORMATION
  Report Type: Report from Study
  Country: AU (occurrence: AU)
  Receive Date: 20140206
  Receipt Date: 20140224
  Transmission Date: 20141002
  Serious: Yes (Hospitalization, Other)
  Sender: FDA-Public Use
  Company Number: PHHY2014AU002935

PATIENT
  Age: 86 Year
  Sex: Female
  Weight: 81 kg

DRUGS (21)
  1. ACLASTA [Suspect]
     Dosage: 5 MG, UNK
     Route: 042
     Dates: start: 20111209
  2. ACLASTA [Suspect]
     Dosage: 5 MG, UNK
     Route: 042
     Dates: start: 20130130
  3. ALLEGRON [Concomitant]
     Indication: DEPRESSION
     Dosage: 25 MG, 5 NOCTE
     Route: 048
     Dates: start: 20081017
  4. AMIODARONE HYDROCHLORIDE [Concomitant]
     Dosage: 200 MG, QD
     Route: 048
     Dates: start: 20131119
  5. FISH OIL [Concomitant]
     Dosage: M.D.U
     Route: 048
     Dates: start: 20081017
  6. LIPITOR [Concomitant]
     Indication: HYPERLIPIDAEMIA
     Dosage: 40 MG, QD
     Route: 048
     Dates: start: 20130723
  7. LIQUIFILM TEARS [Concomitant]
     Indication: DRY EYE
     Dosage: 1 TO 2 DROP M.D.U
     Dates: start: 20081017
  8. LITHICARB [Concomitant]
     Indication: DEPRESSION
     Dosage: 250 MG, 1/2 B.D
     Route: 048
     Dates: start: 20081017
  9. METOPROLOL TARTRATE [Concomitant]
     Dosage: 100 MG, 1/2 B.D
     Route: 048
     Dates: start: 20130822
  10. MOVICOL [Concomitant]
     Dosage: 13.125 MG
     Route: 048
     Dates: start: 20130723
  11. MOVICOL [Concomitant]
     Dosage: 350.7 MG, UNK
     Route: 048
  12. MOVICOL [Concomitant]
     Dosage: 46.6 MG, UNK
     Route: 048
  13. MOVICOL [Concomitant]
     Dosage: 178.5 MG, UNK
     Route: 048
  14. NEXIUM 1-2-3 [Concomitant]
     Indication: GASTROOESOPHAGEAL REFLUX DISEASE
     Dosage: 20 MG, 1 MANE
     Route: 048
     Dates: start: 20130723
  15. OROXINE [Concomitant]
     Indication: HYPOTHYROIDISM
     Dosage: 50 UG, 1/2 DAILY
     Route: 048
     Dates: start: 20120222
  16. OSTELIN VITAMIN D [Concomitant]
     Dosage: 1000 UNIT 1 DAILY
     Route: 048
     Dates: start: 20081017
  17. PANADOL OSTEO [Concomitant]
     Dosage: 665 MG, 2 B.D. OR TDS
     Route: 048
     Dates: start: 20131129
  18. RISPERDAL [Concomitant]
     Dosage: 1 MG, 1/2 NOCTE
     Route: 048
     Dates: start: 20081017
  19. UREX//NITROFURANTOIN [Concomitant]
     Dosage: 20 MG, 1 MANE
     Route: 048
     Dates: start: 20131119
  20. XARELTO [Concomitant]
     Dosage: 20 MG, 1 DAILY
     Route: 048
     Dates: start: 20130809
  21. ANTIDEPRESSANTS [Concomitant]
     Dosage: UNK

REACTIONS (10)
  - Atrial flutter [Recovered/Resolved]
  - Supraventricular extrasystoles [Recovered/Resolved]
  - Atrial fibrillation [Recovered/Resolved]
  - Osteoporotic fracture [Unknown]
  - Spinal compression fracture [Unknown]
  - Hypercalcaemia [Recovering/Resolving]
  - Palpitations [Unknown]
  - Dizziness [Unknown]
  - Dyspnoea [Unknown]
  - Glomerular filtration rate decreased [Not Recovered/Not Resolved]
